FAERS Safety Report 22948204 (Version 2)
Quarter: 2023Q4

REPORT INFORMATION
  Report Type: Spontaneous
  Country: US (occurrence: US)
  Receive Date: 20230915
  Receipt Date: 20231110
  Transmission Date: 20240110
  Serious: No
  Sender: FDA-Public Use
  Company Number: US-TAKEDA-2023TUS088870

PATIENT
  Sex: Male
  Weight: 77 kg

DRUGS (2)
  1. VYVANSE [Suspect]
     Active Substance: LISDEXAMFETAMINE DIMESYLATE
     Indication: Attention deficit hyperactivity disorder
     Dosage: 50 MILLIGRAM, QD
     Route: 065
     Dates: start: 2007
  2. VYVANSE [Suspect]
     Active Substance: LISDEXAMFETAMINE DIMESYLATE
     Dosage: 60 MILLIGRAM, QD
     Route: 065
     Dates: start: 2007

REACTIONS (6)
  - Abnormal behaviour [Unknown]
  - Insurance issue [Unknown]
  - Therapeutic response shortened [Unknown]
  - Product availability issue [Unknown]
  - Product use issue [Unknown]
  - Off label use [Unknown]
